FAERS Safety Report 7341518-1 (Version None)
Quarter: 2011Q1

REPORT INFORMATION
  Report Type: 
  Country: None (occurrence: None)
  Receive Date: 20110309
  Receipt Date: 20110228
  Transmission Date: 20110831
  Serious: Yes (Hospitalization)
  Sender: FDA-Public Use
  Company Number: US-CEPHALON-2011000787

PATIENT
  Sex: Female

DRUGS (8)
  1. WELLBUTRIN [Suspect]
     Indication: DEPRESSION
  2. CYMBALTA [Concomitant]
     Indication: DEPRESSION
  3. NUVIGIL [Suspect]
     Indication: HYPERSOMNIA
     Route: 048
     Dates: start: 20100101, end: 20101201
  4. WELLBUTRIN [Suspect]
     Indication: POST-TRAUMATIC STRESS DISORDER
     Route: 048
  5. WELLBUTRIN [Suspect]
     Indication: PREMENSTRUAL SYNDROME
  6. CYMBALTA [Concomitant]
     Indication: PREMENSTRUAL SYNDROME
  7. RITALIN [Concomitant]
  8. CYMBALTA [Concomitant]
     Indication: POST-TRAUMATIC STRESS DISORDER
     Route: 048

REACTIONS (10)
  - SWOLLEN TONGUE [None]
  - MUSCLE TWITCHING [None]
  - MUSCULOSKELETAL STIFFNESS [None]
  - LIP SWELLING [None]
  - DRUG INTERACTION [None]
  - HYPERSENSITIVITY [None]
  - CONVULSION [None]
  - DYSPNOEA [None]
  - SWELLING FACE [None]
  - TREMOR [None]
